FAERS Safety Report 23913630 (Version 1)
Quarter: 2024Q2

REPORT INFORMATION
  Report Type: Spontaneous
  Country: IT (occurrence: IT)
  Receive Date: 20240529
  Receipt Date: 20240529
  Transmission Date: 20240716
  Serious: Yes (Hospitalization, Other)
  Sender: FDA-Public Use
  Company Number: None

PATIENT
  Age: 49 Year
  Sex: Male

DRUGS (7)
  1. ACETAMINOPHEN [Suspect]
     Active Substance: ACETAMINOPHEN
     Dosage: (DOSAGE TEXT: AS NEEDED) AT AN UNSPECIFIED DOSE AND FREQUENCY
     Route: 042
     Dates: start: 20240416, end: 20240426
  2. DELORAZEPAM [Concomitant]
     Active Substance: DELORAZEPAM
     Route: 065
  3. TAPENTADOL [Concomitant]
     Active Substance: TAPENTADOL
     Route: 065
  4. LINEZOLID [Concomitant]
     Active Substance: LINEZOLID
     Route: 065
  5. ENOXAPARIN SODIUM [Concomitant]
     Active Substance: ENOXAPARIN SODIUM
     Route: 065
  6. PANTOPRAZOLE SODIUM [Concomitant]
     Active Substance: PANTOPRAZOLE SODIUM
     Route: 065
  7. MEROPENEM [Concomitant]
     Active Substance: MEROPENEM
     Route: 065

REACTIONS (1)
  - Drug-induced liver injury [Recovering/Resolving]

NARRATIVE: CASE EVENT DATE: 20240426
